FAERS Safety Report 5760853-1 (Version None)
Quarter: 2008Q2

REPORT INFORMATION
  Report Type: 
  Country: None (occurrence: None)
  Receive Date: 20080606
  Receipt Date: 20080528
  Transmission Date: 20081010
  Serious: Yes (Hospitalization)
  Sender: FDA-Public Use
  Company Number: US-KINGPHARMUSA00001-K200800601

PATIENT

DRUGS (18)
  1. ALTACE [Suspect]
     Indication: CARDIAC FAILURE
     Dosage: 1.25 MG, QD
     Route: 048
     Dates: end: 20080407
  2. CARDENSIEL [Suspect]
     Indication: CARDIAC FAILURE
     Dosage: 1.25 MG, QD
     Route: 048
     Dates: end: 20080407
  3. LASILIX                            /00032601/ [Concomitant]
     Indication: CARDIAC FAILURE
     Dosage: 40 MG, UNK
     Route: 048
  4. DIFFU K [Concomitant]
     Dosage: 600 MG, UNK
  5. AMIODARONE HCL [Concomitant]
     Dosage: 20 MG, UNK
  6. KARDEGIC                           /00002703/ [Concomitant]
     Dosage: 75 MG, UNK
  7. DIANTALVIC [Concomitant]
  8. FORLAX [Concomitant]
  9. HYDROCORTISONE [Concomitant]
     Dosage: 40 MG, UNK
  10. INEXIUM                            /01479302/ [Concomitant]
  11. CACIT                              /00108001/ [Concomitant]
  12. TARDOFER [Concomitant]
  13. IMOVANE [Concomitant]
  14. ATACAND [Concomitant]
  15. VENTOLIN [Concomitant]
  16. BECOTIDE [Concomitant]
  17. SPIRIVA [Concomitant]
  18. LEVOTHYROXINE SODIUM [Concomitant]
     Dosage: UNK, UNK

REACTIONS (4)
  - BRONCHITIS [None]
  - HYPERKALAEMIA [None]
  - HYPOTENSION [None]
  - RENAL FAILURE ACUTE [None]
